FAERS Safety Report 19624397 (Version 1)
Quarter: 2021Q3

REPORT INFORMATION
  Report Type: Spontaneous
  Country: US (occurrence: US)
  Receive Date: 20210728
  Receipt Date: 20210728
  Transmission Date: 20211014
  Serious: Yes (Other)
  Sender: FDA-Public Use
  Company Number: US-DRREDDYS-SPO/USA/21/0138333

PATIENT
  Age: 43 Year
  Sex: Female

DRUGS (2)
  1. ZENATANE [Suspect]
     Active Substance: ISOTRETINOIN
     Indication: PRODUCT USED FOR UNKNOWN INDICATION
     Dosage: RMA ISSUE DATE: 24 FEBRUARY 2021 12:00:00 AM, 23 MARCH 2021 12:00:00 AM, 23 APRIL 2021 12:00:00 AM
  2. ACCUTANE [Suspect]
     Active Substance: ISOTRETINOIN
     Indication: PRODUCT USED FOR UNKNOWN INDICATION
     Dosage: RMA ISSUE DATE: 24 MAY 2021 12:00:00 AM, 23 JUNE 2021 12:00:00 AM

REACTIONS (3)
  - Dry eye [Unknown]
  - Mood swings [Unknown]
  - Fatigue [Unknown]
